FAERS Safety Report 9632553 (Version 2)
Quarter: 2013Q4

REPORT INFORMATION
  Report Type: Report from Study
  Country: US (occurrence: US)
  Receive Date: 20131018
  Receipt Date: 20131018
  Transmission Date: 20140711
  Serious: Yes (Hospitalization, Other)
  Sender: FDA-Public Use
  Company Number: US-SA-THYM-1004041

PATIENT
  Age: 27 Year
  Sex: Male

DRUGS (9)
  1. THYMOGLOBULINE [Suspect]
     Indication: RENAL TRANSPLANT
     Dosage: 100 MG, UNK
     Route: 042
     Dates: start: 20130716
  2. THYMOGLOBULINE [Suspect]
     Indication: IMMUNOSUPPRESSANT DRUG THERAPY
     Dosage: 100 MG, UNK
     Route: 042
     Dates: start: 20130716
  3. PROGRAF [Suspect]
     Indication: RENAL TRANSPLANT
     Dosage: UNK
     Route: 048
     Dates: start: 20130715, end: 20130818
  4. CELLCEPT [Suspect]
     Indication: RENAL TRANSPLANT
     Dosage: UNK
     Route: 065
     Dates: start: 20130715
  5. NYSTATIN [Concomitant]
     Dosage: UNK
     Dates: start: 20130715
  6. VALCYTE [Concomitant]
     Dosage: UNK
     Dates: start: 20130715
  7. TOPROL XL [Concomitant]
  8. BACTRIM [Concomitant]
  9. LISINOPRIL [Concomitant]
     Dosage: UNK
     Dates: start: 20130328

REACTIONS (5)
  - Gastritis [Unknown]
  - Chest pain [Recovered/Resolved]
  - Oxygen saturation decreased [Recovered/Resolved]
  - Tachycardia [Recovered/Resolved]
  - Pyrexia [Recovered/Resolved]
